FAERS Safety Report 13560684 (Version 1)
Quarter: 2017Q2

REPORT INFORMATION
  Report Type: Spontaneous
  Country: US (occurrence: US)
  Receive Date: 20170518
  Receipt Date: 20170518
  Transmission Date: 20170830
  Serious: Yes (Other)
  Sender: FDA-Public Use
  Company Number: US-ROCHE-770637

PATIENT
  Age: 66 Year
  Sex: Female

DRUGS (4)
  1. ALEVE [Suspect]
     Active Substance: NAPROXEN SODIUM
     Indication: OSTEOARTHRITIS
     Dosage: DRUG: ALEVE GELCAP (NAPROXEN SODIUM) FILM-COATED TABLET.
     Route: 065
  2. OMEPRAZOLE. [Concomitant]
     Active Substance: OMEPRAZOLE
     Route: 065
  3. METFORMIN [Concomitant]
     Active Substance: METFORMIN HYDROCHLORIDE
     Route: 065
  4. CELECOXIB. [Suspect]
     Active Substance: CELECOXIB
     Indication: OSTEOARTHRITIS
     Route: 065

REACTIONS (6)
  - Hypertension [Recovering/Resolving]
  - Chronic kidney disease [Unknown]
  - Oedema [Recovering/Resolving]
  - Gastrointestinal haemorrhage [Unknown]
  - Dyspepsia [Recovering/Resolving]
  - Cardiac failure congestive [Unknown]
